FAERS Safety Report 9753905 (Version 2)
Quarter: 2014Q1

REPORT INFORMATION
  Report Type: Spontaneous
  Country: GB (occurrence: None)
  Receive Date: 20131211
  Receipt Date: 20140218
  Transmission Date: 20141002
  Serious: Yes (Death, Hospitalization)
  Sender: FDA-Public Use
  Company Number: GB-AIKEM-000418

PATIENT
  Age: 47 Year
  Sex: Female
  Weight: 157 kg

DRUGS (14)
  1. MYCOPHENOLATE MOFETIL [Suspect]
     Indication: INTERSTITIAL LUNG DISEASE
     Dosage: 500.00000000-MG-2.0 0 TIMES PER-1.0DAYS, ORAL
     Route: 048
     Dates: start: 20130515, end: 20130829
  2. PREDNISOLONE [Suspect]
     Indication: PRODUCT USED FOR UNKNOWN INDICATION
     Route: 048
     Dates: start: 201202
  3. STELARA [Suspect]
     Indication: PRODUCT USED FOR UNKNOWN INDICATION
     Dosage: 90.00000000-MG-, SUBCUTANEOUS
     Route: 058
     Dates: start: 20130717, end: 20130823
  4. OMEPRAZOLE (OMEPRAZOLE) [Concomitant]
  5. NAPROXEN(NAPROXEN) [Concomitant]
  6. ALENDRONIC ACID(ALENODRONIC ACID) [Concomitant]
  7. URSODEOXYCHLOIC ACID(URSODEOXYCHOLIC ACID) [Concomitant]
  8. SERETIDE(SERETIDE) [Concomitant]
  9. CALCICHEW D3(CALCICHEW D3) [Concomitant]
  10. KETOROLAC (KETOROLAC) [Concomitant]
  11. SERTRALINE(SERTRALINE) [Concomitant]
  12. LEVOTHYROXINE(LEVOTHYROXINE) [Concomitant]
  13. PROPRANOLOL(PROPRANOLOL) [Concomitant]
  14. CODEINE PHOSPHATE(CODEINE PHOSPHATE) [Concomitant]

REACTIONS (8)
  - Candida infection [None]
  - Brain oedema [None]
  - Respiratory failure [None]
  - Pneumonia [None]
  - Convulsion [None]
  - Status epilepticus [None]
  - Septic arthritis staphylococcal [None]
  - Encephalitis [None]
